FAERS Safety Report 12481760 (Version 4)
Quarter: 2016Q4

REPORT INFORMATION
  Report Type: Report from Study
  Country: FR (occurrence: FR)
  Receive Date: 20160620
  Receipt Date: 20161005
  Transmission Date: 20170207
  Serious: Yes (Death, Hospitalization, Other)
  Sender: FDA-Public Use
  Company Number: FR-009507513-1606FRA006158

PATIENT
  Age: 55 Year
  Sex: Male
  Weight: 60 kg

DRUGS (11)
  1. SELENIUM (UNSPECIFIED) [Concomitant]
     Active Substance: SELENIUM
     Dosage: 1 DF, QW, STRENGHT 10MICROGRAM/ML
     Route: 042
     Dates: start: 20160414
  2. PROGRAF [Concomitant]
     Active Substance: TACROLIMUS\TACROLIMUS ANHYDROUS
     Dosage: 1.5 MG, EVENING
  3. MK-5172A [Suspect]
     Active Substance: ELBASVIR\GRAZOPREVIR ANHYDROUS
     Indication: HEPATITIS C
     Dosage: 1 DF, QD
     Route: 048
     Dates: start: 20160314, end: 20160610
  4. PROGRAF [Concomitant]
     Active Substance: TACROLIMUS\TACROLIMUS ANHYDROUS
     Dosage: 1.5 MG, MORNING
  5. SPECIAFOLDINE [Concomitant]
     Active Substance: FOLIC ACID
  6. PIPERACILLIN AND TAZOBACTAM [Suspect]
     Active Substance: PIPERACILLIN SODIUM\TAZOBACTAM SODIUM
     Dosage: 4 G, TID, STRENGHT 4G/500MG
     Route: 042
     Dates: start: 20160603
  7. CORTANCYL [Concomitant]
     Active Substance: PREDNISONE
  8. PRINCI B FORT [Concomitant]
  9. ROVALCYTE [Concomitant]
     Active Substance: VALGANCICLOVIR HYDROCHLORIDE
  10. PANTOPRAZOLE [Concomitant]
     Active Substance: PANTOPRAZOLE SODIUM
  11. MYCOPHENOLATE MOFETIL. [Concomitant]
     Active Substance: MYCOPHENOLATE MOFETIL

REACTIONS (10)
  - Death [Fatal]
  - Coma [Recovered/Resolved]
  - Pneumocystis jirovecii pneumonia [Unknown]
  - Device related infection [Unknown]
  - Cytomegalovirus infection [Unknown]
  - Encephalopathy [Unknown]
  - Ammonia decreased [Unknown]
  - Erysipelas [Unknown]
  - Sepsis [Unknown]
  - Seizure [Recovered/Resolved]

NARRATIVE: CASE EVENT DATE: 2016
